FAERS Safety Report 21506591 (Version 1)
Quarter: 2022Q4

REPORT INFORMATION
  Report Type: Spontaneous
  Country: CN (occurrence: None)
  Receive Date: 20221026
  Receipt Date: 20221026
  Transmission Date: 20230112
  Serious: Yes (Other)
  Sender: FDA-Public Use
  Company Number: CN-ROCHE-3205070

PATIENT
  Age: 64 Year
  Sex: Male

DRUGS (23)
  1. MABTHERA [Suspect]
     Active Substance: RITUXIMAB
     Indication: Lymphoma transformation
     Route: 041
     Dates: start: 202005
  2. MABTHERA [Suspect]
     Active Substance: RITUXIMAB
     Route: 041
     Dates: start: 202008
  3. MABTHERA [Suspect]
     Active Substance: RITUXIMAB
     Route: 041
     Dates: start: 20211016
  4. POLATUZUMAB VEDOTIN [Suspect]
     Active Substance: POLATUZUMAB VEDOTIN
     Indication: Lymphoma transformation
     Route: 065
     Dates: start: 20211016
  5. CYCLOPHOSPHAMIDE [Concomitant]
     Active Substance: CYCLOPHOSPHAMIDE
     Dates: start: 202005
  6. CYCLOPHOSPHAMIDE [Concomitant]
     Active Substance: CYCLOPHOSPHAMIDE
     Dates: start: 20211016
  7. DOXORUBICIN [Concomitant]
     Active Substance: DOXORUBICIN
     Dates: start: 202005
  8. DOXORUBICIN [Concomitant]
     Active Substance: DOXORUBICIN
     Dosage: 40MG D2
     Dates: start: 20210907
  9. VINCRISTINE [Concomitant]
     Active Substance: VINCRISTINE
     Dates: start: 202005
  10. PREDNISONE [Concomitant]
     Active Substance: PREDNISONE
     Dates: start: 202005
  11. LENALIDOMIDE [Concomitant]
     Active Substance: LENALIDOMIDE
     Dates: start: 202005
  12. METHOTREXATE [Concomitant]
     Active Substance: METHOTREXATE
  13. DECITABINE [Concomitant]
     Active Substance: DECITABINE
     Dosage: 10MG D1-3
     Dates: start: 20210531
  14. IFOSFAMIDE [Concomitant]
     Active Substance: IFOSFAMIDE
     Dosage: 1G D1-5
     Dates: start: 20210531
  15. CISPLATIN [Concomitant]
     Active Substance: CISPLATIN
     Dosage: 30MG D1-3
     Dates: start: 20210531
  16. ETOPOSIDE [Concomitant]
     Active Substance: ETOPOSIDE
     Dosage: 60MG D1-3
     Dates: start: 20210531
  17. ETOPOSIDE [Concomitant]
     Active Substance: ETOPOSIDE
     Dates: start: 20211016
  18. FLUDARABINE [Concomitant]
     Active Substance: FLUDARABINE PHOSPHATE
     Dosage: 50MG D4-5
     Dates: start: 20210531
  19. FLUDARABINE [Concomitant]
     Active Substance: FLUDARABINE PHOSPHATE
     Dosage: 50MG D3-5
     Dates: start: 20210907
  20. ZANUBRUTINIB [Concomitant]
     Active Substance: ZANUBRUTINIB
  21. THIOTEPA [Concomitant]
     Active Substance: THIOTEPA
     Dosage: 40MG D1
     Dates: start: 20210907
  22. BENDAMUSTINE [Concomitant]
     Active Substance: BENDAMUSTINE
     Dates: start: 20211016
  23. CARBOPLATIN [Concomitant]
     Active Substance: CARBOPLATIN
     Dates: start: 20211016

REACTIONS (5)
  - Agranulocytosis [Unknown]
  - Pneumonitis [Unknown]
  - Skin infection [Recovering/Resolving]
  - Cytokine release syndrome [Unknown]
  - Soft tissue infection [Recovering/Resolving]

NARRATIVE: CASE EVENT DATE: 20200701
